FAERS Safety Report 9820130 (Version 1)
Quarter: 2014Q1

REPORT INFORMATION
  Report Type: Spontaneous
  Country: US (occurrence: None)
  Receive Date: 20140113
  Receipt Date: 20140113
  Transmission Date: 20141002
  Serious: Yes (Other)
  Sender: FDA-Public Use
  Company Number: None

PATIENT
  Age: 52 Year
  Sex: Female
  Weight: 63.5 kg

DRUGS (1)
  1. HYDROCORTISONE [Suspect]
     Indication: ADRENAL INSUFFICIENCY
     Dosage: 4 PILLS 3 IN AM, 1 IN AFTN TAKEN BY MOUTH
     Route: 048
     Dates: start: 20131205, end: 20131230

REACTIONS (11)
  - Abdominal pain upper [None]
  - Burning sensation [None]
  - Anxiety [None]
  - Depression [None]
  - Feeling abnormal [None]
  - Sleep disorder [None]
  - Tremor [None]
  - Dizziness [None]
  - Chills [None]
  - Diarrhoea [None]
  - Feeling of body temperature change [None]
